FAERS Safety Report 16335711 (Version 1)
Quarter: 2019Q2

REPORT INFORMATION
  Report Type: Spontaneous
  Country: CH (occurrence: CH)
  Receive Date: 20190521
  Receipt Date: 20190521
  Transmission Date: 20190711
  Serious: Yes (Other)
  Sender: FDA-Public Use
  Company Number: CH-ROCHE-2291820

PATIENT
  Age: 60 Year
  Sex: Male
  Weight: 76 kg

DRUGS (10)
  1. CARBOPLATIN. [Suspect]
     Active Substance: CARBOPLATIN
     Indication: OFF LABEL USE
     Route: 065
     Dates: start: 20190402
  2. AVASTIN [Suspect]
     Active Substance: BEVACIZUMAB
     Indication: OFF LABEL USE
     Route: 042
     Dates: start: 20190319
  3. CARBOPLATIN. [Suspect]
     Active Substance: CARBOPLATIN
     Indication: LUNG ADENOCARCINOMA
     Route: 065
     Dates: start: 2018, end: 20190226
  4. TAXOL [Concomitant]
     Active Substance: PACLITAXEL
     Indication: LUNG ADENOCARCINOMA
     Route: 065
     Dates: start: 2018, end: 20190226
  5. AVASTIN [Suspect]
     Active Substance: BEVACIZUMAB
     Indication: LUNG ADENOCARCINOMA
     Route: 042
     Dates: start: 2018, end: 20190226
  6. SOLU-MEDROL [Concomitant]
     Active Substance: METHYLPREDNISOLONE SODIUM SUCCINATE
     Indication: LUNG ADENOCARCINOMA
     Route: 065
     Dates: start: 20190402
  7. SOLU-MEDROL [Concomitant]
     Active Substance: METHYLPREDNISOLONE SODIUM SUCCINATE
     Indication: OFF LABEL USE
  8. TECENTRIQ [Suspect]
     Active Substance: ATEZOLIZUMAB
     Indication: LUNG ADENOCARCINOMA
     Route: 041
     Dates: end: 20190226
  9. TECENTRIQ [Suspect]
     Active Substance: ATEZOLIZUMAB
     Indication: OFF LABEL USE
     Route: 042
     Dates: start: 20190319
  10. TAXOL [Concomitant]
     Active Substance: PACLITAXEL
     Indication: OFF LABEL USE

REACTIONS (4)
  - Disease progression [Not Recovered/Not Resolved]
  - Hypersensitivity [Unknown]
  - Off label use [Unknown]
  - Intentional product use issue [Unknown]

NARRATIVE: CASE EVENT DATE: 201901
